FAERS Safety Report 18390823 (Version 1)
Quarter: 2020Q4

REPORT INFORMATION
  Report Type: Spontaneous
  Country: US (occurrence: US)
  Receive Date: 20201016
  Receipt Date: 20201016
  Transmission Date: 20210114
  Serious: No
  Sender: FDA-Public Use
  Company Number: US-009507513-2010USA004709

PATIENT
  Sex: Female
  Weight: 61.68 kg

DRUGS (1)
  1. NEXPLANON [Suspect]
     Active Substance: ETONOGESTREL
     Dosage: 1 IMPLANT, LEFT ARM

REACTIONS (3)
  - Complication associated with device [Recovered/Resolved]
  - Complication of device removal [Unknown]
  - Embedded device [Unknown]

NARRATIVE: CASE EVENT DATE: 20200911
